FAERS Safety Report 6584630-7 (Version None)
Quarter: 2010Q1

REPORT INFORMATION
  Report Type: 
  Country: None (occurrence: None)
  Receive Date: 20100213
  Receipt Date: 20100213
  Transmission Date: 20100710
  Serious: Yes (Other)
  Sender: FDA-Public Use
  Company Number: None

PATIENT
  Age: 55 Year
  Sex: Male
  Weight: 74.8435 kg

DRUGS (1)
  1. TEARS AGAIN HYDRATE SOFTGELS [Suspect]
     Indication: DRY EYE
     Dosage: SOFTGELS TWICE A DAY
     Dates: start: 20100201, end: 20100203

REACTIONS (1)
  - CONSTIPATION [None]
